FAERS Safety Report 8110037-7 (Version None)
Quarter: 2012Q1

REPORT INFORMATION
  Report Type: 
  Country: None (occurrence: None)
  Receive Date: 20120202
  Receipt Date: 20120123
  Transmission Date: 20120608
  Serious: No
  Sender: FDA-Public Use
  Company Number: US-AMGEN-USASP2011067102

PATIENT
  Age: 61 Year
  Sex: Female
  Weight: 87.982 kg

DRUGS (14)
  1. ETODOLAC [Concomitant]
     Dosage: 400 MG, BID
  2. ASPIRIN [Concomitant]
     Dosage: 81 MG, QD
  3. PRILOSEC [Concomitant]
     Dosage: 20 MG, QD
  4. FOLIC ACID [Concomitant]
     Dosage: 1 MG, QD
  5. VITAMIN D [Concomitant]
     Dosage: 1000 UNIT, QD
  6. TOPROL-XL [Concomitant]
     Dosage: 25 MG, QD
  7. GARLIC                             /01570501/ [Concomitant]
  8. GLUCOSAMINE CHONDROITIN [Concomitant]
     Dosage: UNK
  9. METHOTREXATE [Concomitant]
     Dosage: 2.5 MG QWK
  10. ASCORBIC ACID [Concomitant]
     Dosage: 500 MG, UNK
  11. ENBREL [Suspect]
     Indication: RHEUMATOID ARTHRITIS
     Dosage: 50 MG, QWK
     Route: 058
  12. PREDNISONE TAB [Concomitant]
     Dosage: 5 MG, QD
     Route: 048
  13. CALCIUM [Concomitant]
     Dosage: 2 TAB DAILY
  14. MULTIVITAMIN                       /00097801/ [Concomitant]
     Dosage: AS DIRECTED

REACTIONS (15)
  - SKIN LESION [None]
  - FURUNCLE [None]
  - PAIN IN EXTREMITY [None]
  - SINUSITIS [None]
  - OEDEMA PERIPHERAL [None]
  - KYPHOSIS [None]
  - SYNOVIAL DISORDER [None]
  - MUSCULOSKELETAL PAIN [None]
  - RHEUMATOID NODULE [None]
  - JOINT CREPITATION [None]
  - INFECTION [None]
  - UPPER RESPIRATORY TRACT INFECTION [None]
  - RHEUMATOID ARTHRITIS [None]
  - FOOT DEFORMITY [None]
  - MELANOCYTIC NAEVUS [None]
